FAERS Safety Report 13230394 (Version 1)
Quarter: 2017Q1

REPORT INFORMATION
  Report Type: Spontaneous
  Country: US (occurrence: US)
  Receive Date: 20170214
  Receipt Date: 20170214
  Transmission Date: 20170428
  Serious: Yes (Other)
  Sender: FDA-Public Use
  Company Number: None

PATIENT
  Age: 76 Year
  Sex: Female
  Weight: 84.6 kg

DRUGS (5)
  1. PROZAC [Concomitant]
     Active Substance: FLUOXETINE HYDROCHLORIDE
  2. MILK THISTLE [Concomitant]
     Active Substance: MILK THISTLE
  3. TRAVATAN Z [Suspect]
     Active Substance: TRAVOPROST
     Indication: GLAUCOMA
     Dosage: AT BEDTIME
     Route: 047
  4. PRILOSEC [Concomitant]
     Active Substance: OMEPRAZOLE MAGNESIUM
  5. ATIVAN [Concomitant]
     Active Substance: LORAZEPAM

REACTIONS (3)
  - Iris disorder [None]
  - Mydriasis [None]
  - Eye disorder [None]

NARRATIVE: CASE EVENT DATE: 20161128
